FAERS Safety Report 15265815 (Version 1)
Quarter: 2018Q3

REPORT INFORMATION
  Report Type: Spontaneous
  Country: IN (occurrence: IN)
  Receive Date: 20180810
  Receipt Date: 20180810
  Transmission Date: 20181010
  Serious: Yes (Hospitalization)
  Sender: FDA-Public Use
  Company Number: IN-MYLANLABS-2018M1060739

PATIENT
  Age: 17 Year
  Sex: Female

DRUGS (4)
  1. CISPLATIN. [Suspect]
     Active Substance: CISPLATIN
     Indication: OSTEOSARCOMA
     Dosage: THREE CYCLES
     Route: 065
  2. DOXORUBICIN [Suspect]
     Active Substance: DOXORUBICIN
     Indication: OSTEOSARCOMA
     Dosage: LONG?TERM CENTRAL VENOUS PORT (CHEMOPORT) WAS IMPLANTED IN SUBCUTANEOUS TISSUE OF RIGHT CHEST WAL...
     Route: 058
  3. CISPLATIN. [Suspect]
     Active Substance: CISPLATIN
     Indication: OSTEOSARCOMA
     Dosage: LONG?TERM CENTRAL VENOUS PORT (CHEMOPORT) WAS IMPLANTED IN SUBCUTANEOUS TISSUE OF RIGHT CHEST WAL...
     Route: 058
  4. DOXORUBICIN [Suspect]
     Active Substance: DOXORUBICIN
     Indication: OSTEOSARCOMA
     Dosage: THREE CYCLES
     Route: 065

REACTIONS (3)
  - Pneumothorax [Recovering/Resolving]
  - Pneumothorax spontaneous [Recovering/Resolving]
  - Bronchopleural fistula [Unknown]
